FAERS Safety Report 6260761-6 (Version None)
Quarter: 2009Q3

REPORT INFORMATION
  Report Type: 
  Country: None (occurrence: None)
  Receive Date: 20090706
  Receipt Date: 20090623
  Transmission Date: 20100115
  Serious: Yes (Hospitalization)
  Sender: FDA-Public Use
  Company Number: 2009-01517

PATIENT
  Age: 63 Year
  Sex: Female
  Weight: 65.8 kg

DRUGS (21)
  1. VELCADE [Suspect]
     Indication: RENAL TRANSPLANT
     Dosage: 1.3 MG/M2, UNK, UNK
     Dates: start: 20090303, end: 20090313
  2. THYMOGLOBULIN         POWER (EXCEPT [DPO]) [Suspect]
     Indication: RENAL TRANSPLANT
     Dosage: 100 MG, UNK, UNK
     Dates: start: 20090303, end: 20090312
  3. PREDNISONE [Suspect]
     Indication: RENAL TRANSPLANT
     Dosage: 5 MG, UNK, UNK
     Dates: start: 20090306, end: 20090417
  4. TACROLIMUS [Suspect]
     Indication: RENAL TRANSPLANT
     Dosage: 4 MG, UNK, UNK
     Dates: start: 20090305, end: 20090417
  5. MYCOPHENOLATE MOFETIL [Suspect]
     Indication: RENAL TRANSPLANT
     Dosage: 2 G, UNK, UNK
     Dates: start: 20090303, end: 20090417
  6. METHYLPREDNISOLONE [Suspect]
     Indication: RENAL TRANSPLANT
     Dosage: 500 MG, UNK, UNK 250 MG, UNK, UNK 125 MG, UNK, UNK
     Dates: start: 20090303, end: 20090303
  7. METHYLPREDNISOLONE [Suspect]
     Indication: RENAL TRANSPLANT
     Dosage: 500 MG, UNK, UNK 250 MG, UNK, UNK 125 MG, UNK, UNK
     Dates: start: 20090304, end: 20090304
  8. METHYLPREDNISOLONE [Suspect]
     Indication: RENAL TRANSPLANT
     Dosage: 500 MG, UNK, UNK 250 MG, UNK, UNK 125 MG, UNK, UNK
     Dates: start: 20090305, end: 20090305
  9. CALCIUM WITH VITAMIN D(ERGOCALCIFEROL, CALCIUM SODIUM LACTATE, CALCIUM [Concomitant]
  10. COREG [Concomitant]
  11. PROGRAF [Concomitant]
  12. PRILOSEC [Concomitant]
  13. LEVEMIR [Concomitant]
  14. HUMALOG [Concomitant]
  15. LEXAPRO [Concomitant]
  16. LIPITOR [Concomitant]
  17. VALCYTE [Concomitant]
  18. ASPIRIN [Concomitant]
  19. NYSTATIN [Concomitant]
  20. BACTRIM [Concomitant]
  21. CLINDAMYCIN HCL [Concomitant]

REACTIONS (26)
  - ABDOMINAL HERNIA [None]
  - ABDOMINAL PAIN [None]
  - ABDOMINAL WALL INFECTION [None]
  - BACTERIA URINE IDENTIFIED [None]
  - BACTERIAL INFECTION [None]
  - BLOOD CULTURE POSITIVE [None]
  - BLOOD GLUCOSE INCREASED [None]
  - BODY TEMPERATURE INCREASED [None]
  - CELLULITIS [None]
  - CHEST X-RAY ABNORMAL [None]
  - CHILLS [None]
  - COMPLICATIONS OF TRANSPLANT SURGERY [None]
  - CULTURE URINE POSITIVE [None]
  - DIARRHOEA [None]
  - DIZZINESS [None]
  - ESCHERICHIA BACTERAEMIA [None]
  - GRAFT INFECTION [None]
  - HAEMATOCRIT DECREASED [None]
  - HAEMOGLOBIN DECREASED [None]
  - INCISION SITE ABSCESS [None]
  - LEUKOCYTOSIS [None]
  - NAUSEA [None]
  - PYELONEPHRITIS [None]
  - RETCHING [None]
  - UROSEPSIS [None]
  - VOMITING [None]
